FAERS Safety Report 8370495-X (Version None)
Quarter: 2012Q2

REPORT INFORMATION
  Report Type: 
  Country: None (occurrence: None)
  Receive Date: 20120518
  Receipt Date: 20120510
  Transmission Date: 20120825
  Serious: Yes (Other)
  Sender: FDA-Public Use
  Company Number: BR-SHIRE-SPV1-2012-00458

PATIENT
  Sex: Male

DRUGS (5)
  1. ELAPRASE [Suspect]
     Dosage: 0.5 MG/KG, 1X/WEEK
     Route: 041
     Dates: start: 20120227, end: 20120227
  2. ELAPRASE [Suspect]
     Indication: MUCOPOLYSACCHARIDOSIS II
     Dosage: 0.5 MG/KG, 1X/WEEK
     Route: 041
     Dates: end: 20120116
  3. ELAPRASE [Suspect]
     Dosage: 0.5 MG/KG, 1X/WEEK
     Route: 041
     Dates: start: 20120206, end: 20120206
  4. ELAPRASE [Suspect]
     Dosage: 0.5 MG/KG, 1X/WEEK
     Route: 041
     Dates: start: 20120213, end: 20120213
  5. ELAPRASE [Suspect]
     Dosage: 0.5 MG/KG, 1X/WEEK
     Route: 041
     Dates: start: 20120220, end: 20120220

REACTIONS (5)
  - NAUSEA [None]
  - URTICARIA [None]
  - EYELID OEDEMA [None]
  - RASH [None]
  - INFUSION RELATED REACTION [None]
